FAERS Safety Report 7600191-5 (Version None)
Quarter: 2011Q3

REPORT INFORMATION
  Report Type: 
  Country: None (occurrence: None)
  Receive Date: 20110711
  Receipt Date: 20110706
  Transmission Date: 20111222
  Serious: Yes (Death, Other)
  Sender: FDA-Public Use
  Company Number: PHFR2011GB03848

PATIENT
  Sex: Male

DRUGS (8)
  1. ATENOLOL [Concomitant]
     Indication: BLOOD PRESSURE INCREASED
     Dosage: 25 MG/DAY
     Route: 048
  2. NIFEDIPINE [Concomitant]
     Indication: BLOOD PRESSURE INCREASED
     Dosage: 40 MG/DAY
     Route: 048
  3. LITHIUM CARBONATE [Suspect]
     Indication: SCHIZOAFFECTIVE DISORDER
     Dosage: 600 MG/DAY
     Route: 048
  4. HYOSCINE BUTYLBROMIDE INJ SABEX STANDARD [Suspect]
     Indication: SALIVARY HYPERSECRETION
     Dosage: 300 UG/DAY
     Route: 048
  5. GAVISCON [Concomitant]
     Indication: DYSPEPSIA
     Dosage: 5 ML, TID
     Route: 048
  6. LEVOTHYROXINE SODIUM [Concomitant]
     Indication: HYPOTHYROIDISM
     Dosage: 150 UG, UNK
     Route: 048
  7. CLOZAPINE [Suspect]
     Indication: SCHIZOPHRENIA
     Dosage: 100 MG + 100 MG + 200 MG
     Route: 048
     Dates: start: 19921109
  8. LACTULOSE [Concomitant]
     Indication: CONSTIPATION
     Dosage: 15 ML, BID

REACTIONS (4)
  - CIRCULATORY COLLAPSE [None]
  - BRONCHIAL CARCINOMA [None]
  - HAEMORRHAGE [None]
  - LOWER RESPIRATORY TRACT INFECTION [None]
